FAERS Safety Report 7702998-2 (Version None)
Quarter: 2011Q3

REPORT INFORMATION
  Report Type: 
  Country: None (occurrence: None)
  Receive Date: 20110823
  Receipt Date: 20110812
  Transmission Date: 20111222
  Serious: Yes (Hospitalization)
  Sender: FDA-Public Use
  Company Number: DE-ELI_LILLY_AND_COMPANY-DE201106008727

PATIENT
  Age: 66 Year
  Sex: Male
  Weight: 98 kg

DRUGS (13)
  1. TORSEMIDE [Concomitant]
     Dosage: 10 MG, UNKNOWN
  2. ACETAMINOPHEN [Concomitant]
     Dosage: UNK
  3. IBUPROFEN [Concomitant]
     Dosage: UNK
  4. SIMAVASTATIN [Concomitant]
     Dosage: UNK
  5. INSUMAN RAPID [Concomitant]
     Dosage: UNK
  6. HUMALOG MIX 75/25 [Suspect]
     Indication: DIABETES MELLITUS
     Dosage: 100 IU, QD
     Route: 058
     Dates: start: 20110401, end: 20110620
  7. ASPIRIN [Concomitant]
     Dosage: 100 DF, UNK
  8. ALLOPURINOL [Concomitant]
     Dosage: UNK
  9. DIOVAN [Concomitant]
     Dosage: 150 DF, UNK
  10. LANTUS [Concomitant]
     Dosage: UNK
  11. PENTAERYTHRITOL TETRANITRATE [Concomitant]
     Dosage: UNK
  12. NALOXONE [Concomitant]
     Dosage: UNK
  13. VOLTAREN [Concomitant]
     Dosage: UNK

REACTIONS (4)
  - PAIN IN EXTREMITY [None]
  - BACK PAIN [None]
  - BLOOD GLUCOSE FLUCTUATION [None]
  - MUSCULOSKELETAL PAIN [None]
